FAERS Safety Report 5720390-7 (Version None)
Quarter: 2008Q2

REPORT INFORMATION
  Report Type: 
  Country: None (occurrence: None)
  Receive Date: 20080428
  Receipt Date: 20080416
  Transmission Date: 20081010
  Serious: Yes (Other)
  Sender: FDA-Public Use
  Company Number: US-PFIZER INC-2008034326

PATIENT
  Sex: Male
  Weight: 77.272 kg

DRUGS (2)
  1. CHANTIX [Suspect]
     Indication: SMOKING CESSATION THERAPY
     Dates: start: 20070902, end: 20071101
  2. EFFEXOR [Concomitant]
     Indication: BIPOLAR DISORDER

REACTIONS (13)
  - AMNESIA [None]
  - APHASIA [None]
  - CEREBROVASCULAR ACCIDENT [None]
  - DYSARTHRIA [None]
  - GAIT DISTURBANCE [None]
  - HYPERHIDROSIS [None]
  - IMPAIRED WORK ABILITY [None]
  - IRRITABILITY [None]
  - MALAISE [None]
  - NIGHTMARE [None]
  - SUICIDE ATTEMPT [None]
  - THINKING ABNORMAL [None]
  - TREMOR [None]
